FAERS Safety Report 15536679 (Version 1)
Quarter: 2018Q4

REPORT INFORMATION
  Report Type: Spontaneous
  Country: IN (occurrence: IN)
  Receive Date: 20181022
  Receipt Date: 20181022
  Transmission Date: 20190205
  Serious: Yes (Other)
  Sender: FDA-Public Use
  Company Number: None

PATIENT
  Age: 48 Year
  Sex: Female
  Weight: 90 kg

DRUGS (10)
  1. GABAPIN [Concomitant]
     Active Substance: GABAPENTIN
  2. EUTHYROX [Concomitant]
     Active Substance: LEVOTHYROXINE SODIUM
  3. NEBIZOK [Concomitant]
  4. XIGDUO XR [Suspect]
     Active Substance: DAPAGLIFLOZIN PROPANEDIOL\METFORMIN HYDROCHLORIDE
     Indication: HYPERINSULINAEMIA
     Dosage: ?          QUANTITY:1 TABLET(S);?
     Route: 048
     Dates: start: 20181018, end: 20181019
  5. LIPOCUT [Concomitant]
  6. OBICURE PLUS [Concomitant]
  7. TAYO [Concomitant]
  8. ZINASE-DP [Concomitant]
  9. RABONIK [Concomitant]
  10. FEBURIC [Concomitant]
     Active Substance: FEBUXOSTAT

REACTIONS (4)
  - Asthenia [None]
  - Vomiting [None]
  - Abdominal pain upper [None]
  - Dizziness [None]

NARRATIVE: CASE EVENT DATE: 20181018
